FAERS Safety Report 12284400 (Version 5)
Quarter: 2016Q3

REPORT INFORMATION
  Report Type: Spontaneous
  Country: US (occurrence: US)
  Receive Date: 20160420
  Receipt Date: 20160811
  Transmission Date: 20161109
  Serious: Yes (Hospitalization)
  Sender: FDA-Public Use
  Company Number: US-AUROBINDO-AUR-APL-2016-04747

PATIENT

DRUGS (2)
  1. LOPERAMIDE HCL [Suspect]
     Active Substance: LOPERAMIDE HYDROCHLORIDE
     Indication: EUPHORIC MOOD
     Dosage: 2 MG, (20 TO 40 TABLETS OF 2 MG LOPERAMIDE 1-2 TIMES/DAY FOR WEEKS)
     Route: 065
  2. CLONAZEPAM. [Concomitant]
     Active Substance: CLONAZEPAM
     Indication: PRODUCT USED FOR UNKNOWN INDICATION
     Route: 065

REACTIONS (11)
  - Electrocardiogram QRS complex prolonged [Recovering/Resolving]
  - Hypotension [Recovering/Resolving]
  - Electrocardiogram QT prolonged [Recovering/Resolving]
  - Dysarthria [Recovering/Resolving]
  - Drug abuse [Recovering/Resolving]
  - Asthenia [Recovering/Resolving]
  - Arrhythmia [Recovering/Resolving]
  - Overdose [Unknown]
  - Hyperkalaemia [Recovering/Resolving]
  - Somnolence [Recovering/Resolving]
  - Confusional state [Unknown]
